FAERS Safety Report 10431221 (Version 2)
Quarter: 2014Q4

REPORT INFORMATION
  Report Type: Spontaneous
  Country: US (occurrence: None)
  Receive Date: 20140902
  Receipt Date: 20141014
  Transmission Date: 20150528
  Serious: Yes (Other)
  Sender: FDA-Public Use
  Company Number: VAL_03338_2014

PATIENT
  Age: 14 Year
  Sex: Female
  Weight: 59.5 kg

DRUGS (1)
  1. EQUETRO [Suspect]
     Active Substance: CARBAMAZEPINE
     Indication: PRODUCT USED FOR UNKNOWN INDICATION
     Dosage: 200 DF
     Route: 048

REACTIONS (1)
  - Hypertension [None]
